FAERS Safety Report 5485113-8 (Version None)
Quarter: 2007Q4

REPORT INFORMATION
  Report Type: 
  Country: None (occurrence: None)
  Receive Date: 20071009
  Receipt Date: 20071009
  Transmission Date: 20080405
  Serious: Yes (Life-Threatening)
  Sender: FDA-Public Use
  Company Number: None

PATIENT
  Sex: Female

DRUGS (1)
  1. PRAVASTATIN [Suspect]
     Indication: HYPERLIPIDAEMIA
     Dosage: 20MG ONCE QD P.O.
     Route: 048
     Dates: start: 20061001, end: 20061201

REACTIONS (1)
  - PROTHROMBIN TIME ABNORMAL [None]
